FAERS Safety Report 21045702 (Version 2)
Quarter: 2022Q3

REPORT INFORMATION
  Report Type: Spontaneous
  Country: JP (occurrence: JP)
  Receive Date: 20220706
  Receipt Date: 20220715
  Transmission Date: 20221026
  Serious: Yes (Other)
  Sender: FDA-Public Use
  Company Number: JP-MTPC-MTPC2022-0017355

PATIENT
  Age: 77 Year
  Sex: Male

DRUGS (1)
  1. REMICADE [Suspect]
     Active Substance: INFLIXIMAB
     Indication: Colitis ulcerative
     Dosage: UNK
     Route: 041

REACTIONS (5)
  - Renal impairment [Unknown]
  - Condition aggravated [Unknown]
  - Dehydration [Unknown]
  - Dialysis [Unknown]
  - Blood albumin decreased [Unknown]
